FAERS Safety Report 14249962 (Version 3)
Quarter: 2017Q4

REPORT INFORMATION
  Report Type: Spontaneous
  Country: RS (occurrence: RS)
  Receive Date: 20171205
  Receipt Date: 20171226
  Transmission Date: 20180321
  Serious: Yes (Hospitalization)
  Sender: FDA-Public Use
  Company Number: RS-ROCHE-2031629

PATIENT
  Sex: Male
  Weight: 86 kg

DRUGS (13)
  1. MABTHERA [Suspect]
     Active Substance: RITUXIMAB
     Indication: RHEUMATOID ARTHRITIS
     Dosage: ON 16/JUN/2014, HE RECEIVED SECOND INFUSION OF 1 CYCLE?ON 15/FEB/2015, HE RECEIVED CYCLE 2?ON 14/JUL
     Route: 042
     Dates: start: 20140521
  2. METHOTREXATE. [Suspect]
     Active Substance: METHOTREXATE
     Indication: RHEUMATOID ARTHRITIS
     Route: 065
     Dates: start: 201010
  3. METHOTREXATE. [Suspect]
     Active Substance: METHOTREXATE
     Route: 065
  4. AFLAMIL [Concomitant]
     Route: 065
  5. CONTROLOC [Concomitant]
     Active Substance: PANTOPRAZOLE SODIUM
     Route: 065
  6. AFLAMIL [Concomitant]
     Dosage: 2X1 TBL
     Route: 065
     Dates: start: 201010
  7. ARAVA [Suspect]
     Active Substance: LEFLUNOMIDE
     Indication: RHEUMATOID ARTHRITIS
     Route: 065
  8. METHOTREXATE. [Suspect]
     Active Substance: METHOTREXATE
     Route: 065
     Dates: start: 201301
  9. CONTROLOC [Concomitant]
     Active Substance: PANTOPRAZOLE SODIUM
     Dosage: TABLESPOON
     Route: 065
     Dates: start: 201010
  10. ALPHA D3 [Concomitant]
     Active Substance: ALFACALCIDOL
     Route: 065
     Dates: start: 20141222
  11. ARAVA [Suspect]
     Active Substance: LEFLUNOMIDE
     Route: 065
     Dates: start: 20141222
  12. METHOTREXATE. [Suspect]
     Active Substance: METHOTREXATE
     Route: 065
     Dates: start: 20140306, end: 20141221
  13. LISONORM [Concomitant]
     Route: 065

REACTIONS (2)
  - Aphthous ulcer [Recovered/Resolved]
  - Retinal vein occlusion [Recovered/Resolved]

NARRATIVE: CASE EVENT DATE: 20140530
